FAERS Safety Report 5581611-7 (Version None)
Quarter: 2008Q1

REPORT INFORMATION
  Report Type: 
  Country: None (occurrence: None)
  Receive Date: 20080104
  Receipt Date: 20080102
  Transmission Date: 20080703
  Serious: Yes (Other)
  Sender: FDA-Public Use
  Company Number: A0570596A

PATIENT
  Age: 60 Year
  Sex: Female
  Weight: 67 kg

DRUGS (7)
  1. NICORETTE [Suspect]
     Route: 002
     Dates: start: 20010101, end: 20020101
  2. NICORETTE [Suspect]
     Route: 002
     Dates: start: 20000101, end: 20010101
  3. EQUATE NICOTINE GUM 2MG [Suspect]
     Route: 002
     Dates: start: 20020101
  4. DYAZIDE [Concomitant]
     Dosage: 37.5MG PER DAY
  5. DILTIAZEM [Concomitant]
     Dosage: 240MG PER DAY
  6. ACCUPRIL [Concomitant]
     Dosage: 40MG PER DAY
  7. EQUATE MULTIVITAMIN [Concomitant]

REACTIONS (6)
  - AUTOIMMUNE HEPATITIS [None]
  - DYSGEUSIA [None]
  - HEPATIC ENZYME INCREASED [None]
  - INTENTIONAL DRUG MISUSE [None]
  - NAUSEA [None]
  - STOMACH DISCOMFORT [None]
